FAERS Safety Report 13152350 (Version 2)
Quarter: 2017Q4

REPORT INFORMATION
  Report Type: Report from Study
  Country: US (occurrence: US)
  Receive Date: 20170125
  Receipt Date: 20171206
  Transmission Date: 20180320
  Serious: Yes (Other)
  Sender: FDA-Public Use
  Company Number: US-SAOL THERAPEUTICS-2016SAO00924

PATIENT
  Age: 53 Year
  Sex: Male

DRUGS (15)
  1. BACLOFEN. [Suspect]
     Active Substance: BACLOFEN
     Dosage: 117.92 ?G, \DAY
     Route: 037
     Dates: start: 20161010
  2. BACLOFEN. [Suspect]
     Active Substance: BACLOFEN
     Dosage: 100.18 ?G, \DAY
     Route: 037
     Dates: start: 20170301
  3. BACLOFEN. [Suspect]
     Active Substance: BACLOFEN
     Dosage: 198.15 ?G, \DAY
     Route: 037
     Dates: start: 20160614
  4. HYDROMORPHONE [Suspect]
     Active Substance: HYDROMORPHONE
     Dosage: 4.954 MG, \DAY
     Route: 037
     Dates: start: 20160614
  5. HYDROMORPHONE [Suspect]
     Active Substance: HYDROMORPHONE
     Dosage: 2.505 MG, \DAY
     Route: 037
     Dates: start: 20170301
  6. BUPIVACAINE. [Suspect]
     Active Substance: BUPIVACAINE
     Dosage: 1.6214 UNK, UNK
     Route: 037
     Dates: start: 20161010
  7. HYDROMORPHONE [Suspect]
     Active Substance: HYDROMORPHONE
     Dosage: 3.952 MG, \DAY
     Route: 037
     Dates: start: 20160912, end: 20161010
  8. HYDROMORPHONE [Suspect]
     Active Substance: HYDROMORPHONE
     Dosage: 2.948 MG, \DAY
     Route: 037
     Dates: start: 20161010
  9. BUPIVACAINE. [Suspect]
     Active Substance: BUPIVACAINE
     Dosage: 1.2091 MG, \DAY
     Route: 037
     Dates: end: 20170301
  10. BACLOFEN. [Suspect]
     Active Substance: BACLOFEN
     Dosage: 158.09 ?G, \DAY
     Route: 037
     Dates: start: 20160912, end: 20161010
  11. BACLOFEN. [Suspect]
     Active Substance: BACLOFEN
     Dosage: 87.93 ?G, \DAY
     Route: 037
     Dates: start: 2017, end: 20170301
  12. HYDROMORPHONE [Suspect]
     Active Substance: HYDROMORPHONE
     Dosage: 2.198 MG, \DAY
     Route: 037
     Dates: end: 20170301
  13. BUPIVACAINE. [Suspect]
     Active Substance: BUPIVACAINE
     Dosage: 2.173 MG, \DAY
     Route: 037
     Dates: start: 20160912, end: 20161010
  14. BUPIVACAINE. [Suspect]
     Active Substance: BUPIVACAINE
     Dosage: 2.7246 MG, \DAY
     Route: 037
     Dates: start: 20160614
  15. BUPIVACAINE. [Suspect]
     Active Substance: BUPIVACAINE
     Dosage: 1.3775 MG, \DAY
     Route: 037
     Dates: start: 20170301

REACTIONS (5)
  - Pain [Recovered/Resolved]
  - Implant site extravasation [Not Recovered/Not Resolved]
  - Constipation [Recovered/Resolved]
  - Device occlusion [Recovered/Resolved]
  - Dysuria [Recovered/Resolved]

NARRATIVE: CASE EVENT DATE: 2016
